FAERS Safety Report 24604069 (Version 1)
Quarter: 2024Q4

REPORT INFORMATION
  Report Type: Spontaneous
  Country: US (occurrence: US)
  Receive Date: 20241111
  Receipt Date: 20241111
  Transmission Date: 20250115
  Serious: No
  Sender: ROCHE
  Company Number: US-ROCHE-10000125480

PATIENT
  Sex: Female

DRUGS (20)
  1. XOLAIR [Suspect]
     Active Substance: OMALIZUMAB
     Indication: Type 2 diabetes mellitus
     Route: 058
  2. BOTOX [Concomitant]
     Active Substance: ONABOTULINUMTOXINA
  3. BUSPIRONE [Concomitant]
     Active Substance: BUSPIRONE HYDROCHLORIDE
  4. FLAXSEED [Concomitant]
     Active Substance: FLAX SEED
  5. HUMALOG [Concomitant]
     Active Substance: INSULIN LISPRO
  6. LOSARTAN [Concomitant]
     Active Substance: LOSARTAN
  7. LYRICA [Concomitant]
     Active Substance: PREGABALIN
  8. METFORMIN [Concomitant]
     Active Substance: METFORMIN HYDROCHLORIDE
  9. MONTELUKAST [Concomitant]
     Active Substance: MONTELUKAST
  10. MOUNJARO [Concomitant]
     Active Substance: TIRZEPATIDE
  11. MYRBETRIQ [Concomitant]
     Active Substance: MIRABEGRON
  12. PANTOPRAZOLE [Concomitant]
     Active Substance: PANTOPRAZOLE
  13. PRIMIDONE [Concomitant]
     Active Substance: PRIMIDONE
  14. PROPRANOLOL [Concomitant]
     Active Substance: PROPRANOLOL HYDROCHLORIDE
  15. QUETIAPINE [Concomitant]
     Active Substance: QUETIAPINE
  16. SERTRALINE [Concomitant]
     Active Substance: SERTRALINE HYDROCHLORIDE
  17. TRAZODONE [Concomitant]
     Active Substance: TRAZODONE HYDROCHLORIDE
  18. TRESIBA [Concomitant]
     Active Substance: INSULIN DEGLUDEC
  19. CITALOPRAM [Concomitant]
     Active Substance: CITALOPRAM
  20. SIMVASTATIN [Concomitant]
     Active Substance: SIMVASTATIN

REACTIONS (4)
  - Decreased interest [Not Recovered/Not Resolved]
  - Depression [Not Recovered/Not Resolved]
  - Psychiatric symptom [Not Recovered/Not Resolved]
  - Off label use [Unknown]
